FAERS Safety Report 4614313-1 (Version None)
Quarter: 2005Q1

REPORT INFORMATION
  Report Type: 
  Country: None (occurrence: None)
  Receive Date: 20050315
  Receipt Date: 20050224
  Transmission Date: 20050727
  Serious: Yes (Other)
  Sender: FDA-Public Use
  Company Number: US_0503113688

PATIENT
  Age: 31 Year
  Sex: Female
  Weight: 41 kg

DRUGS (10)
  1. LENTE ILETIN II (PORK) [Suspect]
     Indication: DIABETES MELLITUS
     Dosage: 11 U/DAY
     Dates: start: 19710101
  2. REGULAR ILETIN II (PORK) [Suspect]
     Indication: DIABETES MELLITUS
     Dosage: 19 U/DAY
     Dates: start: 19710101
  3. LENTE ILETIN (BEEF-PORK) INSULIN ZINC [Suspect]
     Indication: DIABETES MELLITUS
     Dates: end: 19710101
  4. REGULAR ILETIN II [Suspect]
     Indication: DIABETES MELLITUS
     Dates: end: 19710101
  5. ILETIN [Suspect]
     Indication: DIABETES MELLITUS
  6. NPH ILETIN I (BEEF-PORK) [Suspect]
     Indication: DIABETES MELLITUS INSULIN-DEPENDENT
  7. HUMULIN L [Suspect]
     Indication: DIABETES MELLITUS
     Dates: start: 20030101
  8. HUMULIN R [Suspect]
     Indication: DIABETES MELLITUS
     Dates: start: 20030101
  9. HUMALOG [Suspect]
     Indication: DIABETES MELLITUS
     Dates: start: 20040101
  10. CLONIDINE [Concomitant]

REACTIONS (1)
  - PERIPHERAL VASCULAR DISORDER [None]
